FAERS Safety Report 15979776 (Version 1)
Quarter: 2019Q1

REPORT INFORMATION
  Report Type: Spontaneous
  Country: US (occurrence: US)
  Receive Date: 20190218
  Receipt Date: 20190218
  Transmission Date: 20190418
  Serious: Yes (Other)
  Sender: FDA-Public Use
  Company Number: None

PATIENT
  Age: 66 Year
  Sex: Female

DRUGS (1)
  1. BUDESONIDE CAP 3MG DR BY AMNEAL PHAR [Suspect]
     Active Substance: BUDESONIDE
     Route: 048
     Dates: start: 20190217, end: 20190217

REACTIONS (3)
  - Dizziness [None]
  - Feeling of body temperature change [None]
  - Headache [None]

NARRATIVE: CASE EVENT DATE: 20190217
